FAERS Safety Report 7753073-2 (Version None)
Quarter: 2011Q3

REPORT INFORMATION
  Report Type: 
  Country: None (occurrence: None)
  Receive Date: 20110913
  Receipt Date: 20110830
  Transmission Date: 20111222
  Serious: Yes (Hospitalization, Other)
  Sender: FDA-Public Use
  Company Number: 2011MA012749

PATIENT
  Age: 25 Year
  Sex: Male

DRUGS (2)
  1. PAROXETINE HCL [Concomitant]
  2. ZOLPIDEM TARTRATE [Suspect]
     Indication: INSOMNIA
     Dosage: 200 MG;HS;UNK

REACTIONS (7)
  - DRUG TOLERANCE [None]
  - EUPHORIC MOOD [None]
  - DISEASE RECURRENCE [None]
  - NAUSEA [None]
  - DIZZINESS [None]
  - VOMITING [None]
  - DEPRESSED MOOD [None]
